FAERS Safety Report 8434394-7 (Version None)
Quarter: 2012Q2

REPORT INFORMATION
  Report Type: 
  Country: None (occurrence: None)
  Receive Date: 20120613
  Receipt Date: 20120515
  Transmission Date: 20120825
  Serious: Yes (Death, Other)
  Sender: FDA-Public Use
  Company Number: PHHY2012JP049320

PATIENT

DRUGS (1)
  1. NILOTINIB [Suspect]
     Dosage: 400 MG, BID
     Route: 048

REACTIONS (4)
  - CARDIAC TAMPONADE [None]
  - BACK PAIN [None]
  - CARDIAC FAILURE [None]
  - PERICARDIAL EFFUSION [None]
